FAERS Safety Report 25342903 (Version 3)
Quarter: 2025Q2

REPORT INFORMATION
  Report Type: Spontaneous
  Country: US (occurrence: US)
  Receive Date: 20250521
  Receipt Date: 20250617
  Transmission Date: 20250716
  Serious: No
  Sender: KARYOPHARM THERAPEUTICS
  Company Number: US-KARYOPHARM-2025KPT100294

PATIENT

DRUGS (11)
  1. SELINEXOR [Suspect]
     Active Substance: SELINEXOR
     Indication: Plasma cell myeloma
     Route: 048
     Dates: start: 202505
  2. ACYCLOVIR [Concomitant]
     Active Substance: ACYCLOVIR
  3. AMANDA [AMANTADINE SULFATE] [Concomitant]
  4. ASPIRIN [Concomitant]
     Active Substance: ASPIRIN
  5. CEFPODOXIME [Concomitant]
     Active Substance: CEFPODOXIME
  6. DEXAMETHASONE [Concomitant]
     Active Substance: DEXAMETHASONE
  7. LASIX [Concomitant]
     Active Substance: FUROSEMIDE
  8. OLANZAPINE [Concomitant]
     Active Substance: OLANZAPINE
  9. ZOFRAN [Concomitant]
     Active Substance: ONDANSETRON HYDROCHLORIDE
  10. POMALYST [Concomitant]
     Active Substance: POMALIDOMIDE
  11. EMEND [Concomitant]
     Active Substance: APREPITANT

REACTIONS (4)
  - Chills [Unknown]
  - Somnolence [Not Recovered/Not Resolved]
  - Confusional state [Unknown]
  - Fatigue [Not Recovered/Not Resolved]

NARRATIVE: CASE EVENT DATE: 20250501
